FAERS Safety Report 20540949 (Version 1)
Quarter: 2022Q1

REPORT INFORMATION
  Report Type: Spontaneous
  Country: DE (occurrence: DE)
  Receive Date: 20220302
  Receipt Date: 20220302
  Transmission Date: 20220424
  Serious: Yes (Hospitalization, Other)
  Sender: FDA-Public Use
  Company Number: DE-EMBRYOTOX-202004741

PATIENT
  Age: 32 Year
  Sex: Female
  Weight: 64 kg

DRUGS (4)
  1. PALIPERIDONE PALMITATE [Suspect]
     Active Substance: PALIPERIDONE PALMITATE
     Indication: Schizophrenia
     Dosage: 100 [MG/2WK ]/ DOSAGE INCREASED FROM 75MG TO 100MG EVERY SECOND WEEK
     Route: 030
     Dates: start: 20190819, end: 20200603
  2. PALIPERIDONE PALMITATE [Suspect]
     Active Substance: PALIPERIDONE PALMITATE
  3. PALIPERIDONE PALMITATE [Suspect]
     Active Substance: PALIPERIDONE PALMITATE
  4. CIPRALEX [Suspect]
     Active Substance: ESCITALOPRAM OXALATE
     Indication: Suicidal ideation
     Dosage: 15 [MG/D]
     Route: 048

REACTIONS (4)
  - Premature rupture of membranes [Unknown]
  - Exposure during pregnancy [Recovered/Resolved]
  - Inappropriate schedule of product administration [Unknown]
  - Off label use [Unknown]
